FAERS Safety Report 7197731-X (Version None)
Quarter: 2010Q4

REPORT INFORMATION
  Report Type: 
  Country: None (occurrence: None)
  Receive Date: 20101214
  Receipt Date: 20101206
  Transmission Date: 20110411
  Serious: Yes (Other)
  Sender: FDA-Public Use
  Company Number: 2010SP053868

PATIENT
  Age: 52 Year
  Sex: Female

DRUGS (1)
  1. DESOGESTREL AND ETHINYL ESTRADIOL [Suspect]
     Indication: MIGRAINE
     Dates: start: 19930101

REACTIONS (3)
  - HYPERTENSION [None]
  - MAMMOGRAM ABNORMAL [None]
  - MENORRHAGIA [None]
